FAERS Safety Report 6920109-8 (Version None)
Quarter: 2010Q3

REPORT INFORMATION
  Report Type: 
  Country: None (occurrence: None)
  Receive Date: 20100811
  Receipt Date: 20100803
  Transmission Date: 20110219
  Serious: Yes (Other)
  Sender: FDA-Public Use
  Company Number: CA-AMGEN-KDL423612

PATIENT
  Sex: Female
  Weight: 13.6 kg

DRUGS (2)
  1. ENBREL [Suspect]
     Indication: JUVENILE ARTHRITIS
     Route: 058
     Dates: start: 20100419
  2. METHOTREXATE [Suspect]
     Dates: start: 20091002

REACTIONS (1)
  - ALOPECIA [None]
